FAERS Safety Report 5734003-1 (Version None)
Quarter: 2008Q2

REPORT INFORMATION
  Report Type: 
  Country: None (occurrence: None)
  Receive Date: 20080509
  Receipt Date: 20080503
  Transmission Date: 20081010
  Serious: Yes (Hospitalization)
  Sender: FDA-Public Use
  Company Number: US-ELI_LILLY_AND_COMPANY-US200805000700

PATIENT
  Sex: Male
  Weight: 112.47 kg

DRUGS (16)
  1. BYETTA [Suspect]
     Indication: TYPE 2 DIABETES MELLITUS
     Dosage: 5 UG, DAILY (1/D)
     Route: 058
     Dates: start: 20080101, end: 20080101
  2. BYETTA [Suspect]
     Dosage: 5 UG, 2/D
     Route: 058
     Dates: start: 20080101, end: 20080101
  3. BYETTA [Suspect]
     Dosage: 10 UG, EACH EVENING
     Route: 058
     Dates: start: 20080201, end: 20080201
  4. BYETTA [Suspect]
     Dosage: 5 UG, EACH MORNING
     Dates: start: 20080201, end: 20080201
  5. BYETTA [Suspect]
     Dosage: 10 UG, 2/D
     Dates: start: 20080201, end: 20080429
  6. SINGULAIR [Concomitant]
     Indication: MULTIPLE ALLERGIES
     Dosage: 10 MG, DAILY (1/D)
     Route: 048
     Dates: end: 20080429
  7. COMBIVENT [Concomitant]
     Dosage: UNK, AS NEEDED
     Route: 055
     Dates: end: 20080429
  8. MICARDIS [Concomitant]
     Indication: HYPERTENSION
     Dosage: 40 MG, DAILY (1/D)
     Route: 048
     Dates: start: 20070101, end: 20080429
  9. VERAPAMIL [Concomitant]
     Indication: HYPERTENSION
     Dosage: 240 MG, DAILY (1/D)
     Route: 048
     Dates: start: 20060101, end: 20080429
  10. FENOFIBRATE [Concomitant]
     Indication: HYPERTENSION
     Dosage: 160 MG, DAILY (1/D)
     Route: 048
     Dates: start: 20060101, end: 20080429
  11. TRIAMTERENE AND HYDROCHLOROTHIAZIDE [Concomitant]
     Dosage: UNK, DAILY (1/D)
     Route: 048
     Dates: end: 20080429
  12. TRIAMTERENE AND HYDROCHLOROTHIAZIDE [Concomitant]
     Dates: start: 20080430
  13. SYNTHROID [Concomitant]
     Indication: THYROID DISORDER
     Dosage: 50 UG, DAILY (1/D)
     Route: 048
     Dates: end: 20080429
  14. TYLENOL /USA/ [Concomitant]
     Indication: PAIN
     Dosage: UNK, AS NEEDED
     Dates: end: 20080429
  15. ALEVE [Concomitant]
     Indication: PAIN
     Dosage: UNK, AS NEEDED
     Dates: end: 20080429
  16. IBUPROFEN TABLETS [Concomitant]
     Indication: PAIN
     Dosage: UNK, AS NEEDED
     Dates: end: 20080429

REACTIONS (10)
  - ABDOMINAL PAIN UPPER [None]
  - ERUCTATION [None]
  - FATIGUE [None]
  - FLATULENCE [None]
  - GASTROENTERITIS [None]
  - HYPERSENSITIVITY [None]
  - PRURITUS [None]
  - URTICARIA [None]
  - VOMITING [None]
  - WEIGHT DECREASED [None]
